FAERS Safety Report 8505531-0 (Version None)
Quarter: 2012Q3

REPORT INFORMATION
  Report Type: 
  Country: None (occurrence: None)
  Receive Date: 20120703
  Receipt Date: 20120620
  Transmission Date: 20120928
  Serious: Yes (Other)
  Sender: FDA-Public Use
  Company Number: ENTC2012-0285

PATIENT
  Age: 80 Year
  Sex: Male

DRUGS (6)
  1. EXELON [Suspect]
     Dosage: 9.5 MG, PER DAY TRANSDERMAL
     Route: 062
     Dates: start: 20090101
  2. EVICSA [Concomitant]
  3. LYRICA [Concomitant]
  4. INVALTA [Concomitant]
  5. STALEVO 50 [Suspect]
     Indication: PARKINSON'S DISEASE
     Dosage: 2 TABLETS (50/12.5/200 MG) PER DAY ORAL
     Route: 048
  6. ALMETEC [Concomitant]

REACTIONS (2)
  - SPINAL COLUMN INJURY [None]
  - DEPRESSION [None]
